FAERS Safety Report 20986227 (Version 1)
Quarter: 2022Q2

REPORT INFORMATION
  Report Type: Spontaneous
  Country: US (occurrence: None)
  Receive Date: 20220621
  Receipt Date: 20220621
  Transmission Date: 20220721
  Serious: No
  Sender: FDA-Public Use
  Company Number: US-ROCHE-3042003

PATIENT
  Sex: Female

DRUGS (4)
  1. CAPECITABINE [Suspect]
     Active Substance: CAPECITABINE
     Indication: Product used for unknown indication
     Route: 048
  2. TUKYSA [Suspect]
     Active Substance: TUCATINIB
     Indication: Breast cancer female
     Dosage: 300 MG IN MORNING AND 150 MG IN EVENING.
     Route: 065
     Dates: end: 20220207
  3. TUKYSA [Suspect]
     Active Substance: TUCATINIB
     Dosage: 300 MG IN MORNING AND 150 MG IN EVENING.
     Route: 065
  4. OMNICEF [Suspect]
     Active Substance: CEFDINIR
     Indication: Product used for unknown indication
     Route: 065

REACTIONS (5)
  - Hypersensitivity [Unknown]
  - Pruritus [Unknown]
  - Blister [Unknown]
  - Lip swelling [Unknown]
  - Blood bilirubin increased [Unknown]
